FAERS Safety Report 4364350-X (Version None)
Quarter: 2004Q2

REPORT INFORMATION
  Report Type: 
  Country: None (occurrence: None)
  Receive Date: 20040525
  Receipt Date: 20040324
  Transmission Date: 20050107
  Serious: No
  Sender: FDA-Public Use
  Company Number: US-BRISTOL-MYERS SQUIBB COMPANY-12540761

PATIENT
  Sex: Female

DRUGS (4)
  1. TAXOL [Suspect]
     Indication: CARCINOMA
  2. CYCLOPHOSPHAMIDE [Suspect]
     Indication: CARCINOMA
  3. ADRIAMYCIN PFS [Suspect]
     Indication: CARCINOMA
  4. FLUOROURACIL [Suspect]
     Indication: CARCINOMA

REACTIONS (1)
  - OSTEOARTHRITIS [None]
